FAERS Safety Report 7235586-5 (Version None)
Quarter: 2011Q1

REPORT INFORMATION
  Report Type: 
  Country: None (occurrence: None)
  Receive Date: 20110120
  Receipt Date: 20110118
  Transmission Date: 20110831
  Serious: No
  Sender: FDA-Public Use
  Company Number: US-PFIZER INC-2011012383

PATIENT
  Sex: Female
  Weight: 61.2 kg

DRUGS (4)
  1. ALENDRONATE SODIUM [Concomitant]
     Indication: OSTEOPOROSIS
     Dosage: UNK
  2. ATENOLOL [Concomitant]
     Indication: BLOOD PRESSURE ABNORMAL
  3. PREMARIN [Suspect]
     Indication: MENOPAUSE
     Dosage: 0.625 MG, 1X/DAY
     Route: 048
  4. FUROSEMIDE [Concomitant]
     Indication: BLOOD PRESSURE ABNORMAL

REACTIONS (1)
  - ALOPECIA [None]
